FAERS Safety Report 6322813-1 (Version None)
Quarter: 2009Q3

REPORT INFORMATION
  Report Type: 
  Country: None (occurrence: None)
  Receive Date: 20090818
  Receipt Date: 20081104
  Transmission Date: 20100115
  Serious: Yes (Hospitalization)
  Sender: FDA-Public Use
  Company Number: MEDI-0007446

PATIENT
  Age: 2 Month
  Sex: Male
  Weight: 5.7 kg

DRUGS (1)
  1. SYNAGIS [Suspect]
     Indication: RESPIRATORY SYNCYTIAL VIRUS INFECTION
     Dosage: 85.5 MG, 1 IN 1 M, INTRAMUSCULAR
     Route: 030
     Dates: start: 20081031, end: 20081031

REACTIONS (2)
  - PYREXIA [None]
  - VIRAL UPPER RESPIRATORY TRACT INFECTION [None]
